FAERS Safety Report 6700751-X (Version None)
Quarter: 2010Q2

REPORT INFORMATION
  Report Type: 
  Country: None (occurrence: None)
  Receive Date: 20100428
  Receipt Date: 20100426
  Transmission Date: 20101027
  Serious: Yes (Hospitalization)
  Sender: FDA-Public Use
  Company Number: JP-BRISTOL-MYERS SQUIBB COMPANY-15038821

PATIENT
  Age: 60 Year
  Sex: Male
  Weight: 68 kg

DRUGS (11)
  1. BARACLUDE [Suspect]
     Indication: HEPATITIS B
     Dosage: DRUG INTERRUPTED 10DEC09; RESTARTED ON 05MAR10
     Route: 048
     Dates: start: 20081210
  2. BARACLUDE [Suspect]
     Indication: HEPATIC CIRRHOSIS
     Dosage: DRUG INTERRUPTED 10DEC09; RESTARTED ON 05MAR10
     Route: 048
     Dates: start: 20081210
  3. HEPSERA [Suspect]
     Route: 048
     Dates: start: 20091211, end: 20100304
  4. URSO 250 [Concomitant]
     Dosage: THE PATIENT ALSO RECEIVED 100X3 MG/DAY
     Route: 048
     Dates: start: 20081029
  5. EUGLUCON [Concomitant]
     Dosage: 1.25MG/D
     Route: 048
     Dates: start: 19950701, end: 20090709
  6. ADALAT CC [Concomitant]
     Route: 048
     Dates: start: 19950701
  7. ALDACTONE [Concomitant]
     Route: 048
     Dates: start: 20090401, end: 20100204
  8. LIVACT [Concomitant]
     Dosage: PT ALSO RECEIVED 4.15 X 3 MG/DAY
     Route: 048
     Dates: start: 20090401, end: 20100401
  9. SEIBULE [Concomitant]
     Route: 048
     Dates: start: 20090410, end: 20090709
  10. GASTER D [Concomitant]
     Route: 048
     Dates: start: 20090515, end: 20100401
  11. LASIX [Concomitant]
     Route: 048

REACTIONS (1)
  - IRON DEFICIENCY ANAEMIA [None]
